FAERS Safety Report 11897229 (Version 1)
Quarter: 2016Q1

REPORT INFORMATION
  Report Type: Spontaneous
  Country: US (occurrence: US)
  Receive Date: 20160108
  Receipt Date: 20160108
  Transmission Date: 20160526
  Serious: No
  Sender: FDA-Public Use
  Company Number: US-DRREDDYS-USA/USA/15/0053135

PATIENT
  Age: 60 Year
  Sex: Female
  Weight: 53.07 kg

DRUGS (1)
  1. HABITROL [Suspect]
     Active Substance: NICOTINE
     Indication: SMOKING CESSATION THERAPY
     Route: 062
     Dates: end: 20151001

REACTIONS (8)
  - Flatulence [Unknown]
  - Abdominal discomfort [Unknown]
  - Anger [Unknown]
  - Weight decreased [Recovered/Resolved]
  - Decreased appetite [Unknown]
  - Asthenia [Unknown]
  - Energy increased [Recovered/Resolved]
  - Weight increased [Unknown]
